FAERS Safety Report 15076529 (Version 1)
Quarter: 2018Q2

REPORT INFORMATION
  Report Type: Spontaneous
  Country: US (occurrence: US)
  Receive Date: 20180627
  Receipt Date: 20180627
  Transmission Date: 20180711
  Serious: No
  Sender: FDA-Public Use
  Company Number: US-MYLANLABS-2018M1044568

PATIENT
  Sex: Female

DRUGS (1)
  1. LEVOTHYROXINE. [Suspect]
     Active Substance: LEVOTHYROXINE
     Indication: THYROID DISORDER
     Dosage: UNK
     Route: 048
     Dates: end: 20180611

REACTIONS (7)
  - Dry throat [Recovered/Resolved]
  - Dry skin [Recovered/Resolved]
  - Head discomfort [Recovered/Resolved]
  - Sinus disorder [Recovered/Resolved]
  - Nasal dryness [Recovered/Resolved]
  - Dyspnoea [Recovered/Resolved]
  - Ear disorder [Recovered/Resolved]

NARRATIVE: CASE EVENT DATE: 20180611
